FAERS Safety Report 7503055-0 (Version None)
Quarter: 2011Q2

REPORT INFORMATION
  Report Type: 
  Country: None (occurrence: None)
  Receive Date: 20110525
  Receipt Date: 20101215
  Transmission Date: 20111010
  Serious: No
  Sender: FDA-Public Use
  Company Number: US-BAUSCH-2010BL007144

PATIENT
  Age: 31 Year
  Sex: Female

DRUGS (3)
  1. CYCLOPENTOLATE HYDROCHLORIDE [Suspect]
     Indication: CONTACT LENS THERAPY
     Route: 047
     Dates: start: 20101211, end: 20101211
  2. TYLENOL ^JOHNSON + JOHNSON^ [Concomitant]
     Indication: WRIST SURGERY
  3. CYCLOPENTOLATE HYDROCHLORIDE [Suspect]
     Indication: OFF LABEL USE
     Route: 047
     Dates: start: 20101211, end: 20101211

REACTIONS (11)
  - EXPIRED DRUG ADMINISTERED [None]
  - EYE IRRITATION [None]
  - DRUG ADMINISTERED AT INAPPROPRIATE SITE [None]
  - PHOTOPHOBIA [None]
  - NAUSEA [None]
  - EYE PAIN [None]
  - HEADACHE [None]
  - CORNEAL ABRASION [None]
  - DRUG LABEL CONFUSION [None]
  - DRUG EFFECT PROLONGED [None]
  - VISION BLURRED [None]
